FAERS Safety Report 18754223 (Version 3)
Quarter: 2021Q4

REPORT INFORMATION
  Report Type: Spontaneous
  Country: JP (occurrence: JP)
  Receive Date: 20210119
  Receipt Date: 20211027
  Transmission Date: 20220303
  Serious: Yes (Other)
  Sender: FDA-Public Use
  Company Number: JP-TAKEDA-2021TJP000089

PATIENT
  Age: 24 Year
  Sex: Female

DRUGS (2)
  1. ENTYVIO [Suspect]
     Active Substance: VEDOLIZUMAB
     Indication: Colitis ulcerative
     Dosage: 300 MILLIGRAM
     Route: 041
     Dates: start: 20200601
  2. URSODIOL [Concomitant]
     Active Substance: URSODIOL
     Indication: Cholangitis sclerosing
     Dosage: 300 MILLIGRAM
     Route: 048
     Dates: start: 20200518

REACTIONS (3)
  - Ovarian haemorrhage [Unknown]
  - Ovarian cyst [Unknown]
  - Pregnancy [Unknown]

NARRATIVE: CASE EVENT DATE: 20201001
